FAERS Safety Report 20443278 (Version 1)
Quarter: 2022Q1

REPORT INFORMATION
  Report Type: Spontaneous
  Country: US (occurrence: None)
  Receive Date: 20220207
  Receipt Date: 20220207
  Transmission Date: 20220423
  Serious: Yes (Hospitalization)
  Sender: FDA-Public Use
  Company Number: None

PATIENT
  Sex: Male

DRUGS (13)
  1. GILENYA [Suspect]
     Active Substance: FINGOLIMOD HYDROCHLORIDE
  2. ABILIFY TAB [Concomitant]
  3. BACLOFEN; [Concomitant]
  4. BUPROPION TAB [Concomitant]
  5. EZETIMIBE TAB [Concomitant]
  6. MELATONIN TAB [Concomitant]
  7. MELOXICAM TAB [Concomitant]
  8. METFORMIN TAB [Concomitant]
  9. TAMSULOSIN CAP [Concomitant]
  10. TERBINAFINE TAB [Concomitant]
  11. VITAMIN C TAB [Concomitant]
  12. VITAMIN D CAP [Concomitant]
  13. WELLBUTRIN TAB [Concomitant]

REACTIONS (3)
  - Fatigue [None]
  - COVID-19 [None]
  - Therapy interrupted [None]
